FAERS Safety Report 18544248 (Version 1)
Quarter: 2020Q4

REPORT INFORMATION
  Report Type: Spontaneous
  Country: CA (occurrence: CA)
  Receive Date: 20201125
  Receipt Date: 20201125
  Transmission Date: 20210114
  Serious: Yes (Hospitalization, Other)
  Sender: FDA-Public Use
  Company Number: CA-SA-2020SA197694

PATIENT

DRUGS (15)
  1. RIFAMPICIN [Suspect]
     Active Substance: RIFAMPIN
     Indication: TUBERCULOSIS
     Dosage: UNK
     Dates: start: 20191023
  2. INFLIXIMAB [Suspect]
     Active Substance: INFLIXIMAB
     Dosage: 10 MG/KG, QOW
     Route: 042
     Dates: start: 20200306, end: 20200306
  3. INFLIXIMAB [Suspect]
     Active Substance: INFLIXIMAB
     Dosage: 10 MG/KG Q8W
     Route: 042
     Dates: start: 20200608, end: 2020
  4. INFLIXIMAB [Suspect]
     Active Substance: INFLIXIMAB
     Dosage: 10 MG/KG, Q6W
     Route: 042
     Dates: start: 20200721, end: 2020
  5. INFLIXIMAB [Suspect]
     Active Substance: INFLIXIMAB
     Dosage: 10 MG/KG, Q6W
     Route: 042
     Dates: start: 20200306, end: 20200306
  6. INFLIXIMAB [Suspect]
     Active Substance: INFLIXIMAB
     Dosage: 10 MG/KG Q6W
     Route: 042
     Dates: start: 20200608, end: 2020
  7. CORTISONE [Concomitant]
     Active Substance: CORTISONE
     Indication: PRODUCT USED FOR UNKNOWN INDICATION
     Dosage: UNK
  8. INFLIXIMAB [Suspect]
     Active Substance: INFLIXIMAB
     Dosage: 10 MG Q6W
     Route: 042
     Dates: start: 20201014
  9. INFLIXIMAB [Suspect]
     Active Substance: INFLIXIMAB
     Indication: COLITIS ULCERATIVE
     Dosage: 5 MG/KG
     Route: 042
     Dates: start: 20200228, end: 20200228
  10. RAMIPRIL. [Suspect]
     Active Substance: RAMIPRIL
     Indication: PRODUCT USED FOR UNKNOWN INDICATION
  11. 5-ASA [Concomitant]
     Active Substance: MESALAMINE
     Indication: PRODUCT USED FOR UNKNOWN INDICATION
     Dosage: UNK
  12. DESOXIMETASONE. [Concomitant]
     Active Substance: DESOXIMETASONE
  13. INFLIXIMAB [Suspect]
     Active Substance: INFLIXIMAB
     Dosage: 10 MG/KG, Q8W
     Route: 042
     Dates: start: 20200306, end: 202003
  14. INFLIXIMAB [Suspect]
     Active Substance: INFLIXIMAB
     Dosage: 10MG/KG Q8W
     Route: 042
     Dates: start: 20200316, end: 2020
  15. INFLIXIMAB [Suspect]
     Active Substance: INFLIXIMAB
     Dosage: 10 MG/KG QOW
     Route: 042
     Dates: start: 20200608, end: 2020

REACTIONS (11)
  - Diarrhoea [Unknown]
  - Dizziness [Unknown]
  - Rectal haemorrhage [Unknown]
  - Hospitalisation [Unknown]
  - Nausea [Unknown]
  - Drug level above therapeutic [Unknown]
  - Therapeutic product effect incomplete [Unknown]
  - Weight increased [Unknown]
  - Drug level decreased [Unknown]
  - Faeces soft [Unknown]
  - Off label use [Unknown]

NARRATIVE: CASE EVENT DATE: 2020
